FAERS Safety Report 18126001 (Version 2)
Quarter: 2021Q1

REPORT INFORMATION
  Report Type: Report from Study
  Country: PL (occurrence: PL)
  Receive Date: 20200807
  Receipt Date: 20210311
  Transmission Date: 20210419
  Serious: Yes (Hospitalization)
  Sender: FDA-Public Use
  Company Number: PL-B.I. PHARMACEUTICALS,INC./RIDGEFIELD-2020-BI-027352

PATIENT
  Age: 67 Year
  Sex: Male
  Weight: 86 kg

DRUGS (10)
  1. EMPAGLIFLOZIN [Suspect]
     Active Substance: EMPAGLIFLOZIN
     Indication: CARDIAC FAILURE
     Route: 048
     Dates: start: 20190507
  2. BISOCARD [Concomitant]
     Active Substance: BISOPROLOL
     Indication: CARDIAC FAILURE
     Dosage: UNIT DOSE: 5
     Route: 048
     Dates: start: 2016
  3. CILAN [Concomitant]
     Indication: CARDIAC FAILURE
     Dosage: UNIT DOSE: 5
     Route: 048
     Dates: start: 20141013
  4. ESPIRO [Concomitant]
     Active Substance: EPLERENONE
     Indication: CARDIAC FAILURE
     Dosage: UNIT DOSE: 25
     Route: 048
     Dates: start: 20141013
  5. MILURIT [Concomitant]
     Active Substance: ALLOPURINOL
     Indication: PURINE METABOLISM DISORDER
     Dosage: UNIT DOSE: 100
     Route: 048
     Dates: start: 2016
  6. LACIPIL [Concomitant]
     Active Substance: LACIDIPINE
     Indication: HYPERTENSION
     Dosage: UNIT DOSE: 4
     Route: 048
     Dates: start: 2016
  7. FUROSEMID [FUROSEMIDE] [Concomitant]
     Active Substance: FUROSEMIDE
     Indication: CARDIAC FAILURE
     Dosage: DAILY DOSE:40
     Route: 048
     Dates: start: 20190410
  8. MEMOTROPIL [Concomitant]
     Active Substance: PIRACETAM
     Indication: CEREBROVASCULAR ACCIDENT
     Dosage: UNIT DOSE: 2.4
     Route: 048
     Dates: start: 20181016
  9. XARELTO [Concomitant]
     Active Substance: RIVAROXABAN
     Indication: THROMBOSIS PROPHYLAXIS
     Dosage: UNIT DOSE: 20
     Route: 048
     Dates: start: 20190417
  10. PLAVIX [Concomitant]
     Active Substance: CLOPIDOGREL BISULFATE
     Indication: THROMBOSIS PROPHYLAXIS
     Dosage: UNIT DOSE: 75
     Route: 048
     Dates: start: 20190826

REACTIONS (1)
  - Staphylococcal bacteraemia [Recovered/Resolved]

NARRATIVE: CASE EVENT DATE: 20200130
